FAERS Safety Report 8988835 (Version 1)
Quarter: 2012Q4

REPORT INFORMATION
  Report Type: Spontaneous
  Country: US (occurrence: None)
  Receive Date: 20121224
  Receipt Date: 20121224
  Transmission Date: 20130627
  Serious: Yes (Other)
  Sender: FDA-Public Use
  Company Number: None

PATIENT
  Age: 53 Year
  Sex: Female
  Weight: 66.23 kg

DRUGS (1)
  1. REVATIO [Suspect]
     Indication: COR PULMONALE
     Route: 048
     Dates: start: 20101219, end: 20101220

REACTIONS (5)
  - Vision blurred [None]
  - Back pain [None]
  - Heart rate decreased [None]
  - Heart rate irregular [None]
  - Chest pain [None]
